FAERS Safety Report 11002116 (Version 5)
Quarter: 2016Q1

REPORT INFORMATION
  Report Type: Spontaneous
  Country: US (occurrence: US)
  Receive Date: 20150408
  Receipt Date: 20160115
  Transmission Date: 20160525
  Serious: No
  Sender: FDA-Public Use
  Company Number: US-ASTELLAS-2015US009017

PATIENT
  Age: 72 Year
  Sex: Female

DRUGS (5)
  1. VESICARE [Suspect]
     Active Substance: SOLIFENACIN SUCCINATE
     Indication: INFECTION
     Route: 048
     Dates: start: 2014
  2. MYRBETRIQ [Suspect]
     Active Substance: MIRABEGRON
     Indication: INFECTION
     Route: 048
     Dates: start: 2014
  3. ENABLEX [Suspect]
     Active Substance: DARIFENACIN HYDROBROMIDE
     Indication: PRODUCT USED FOR UNKNOWN INDICATION
     Dosage: UNK UNK, UNKNOWN FREQ.
     Route: 065
  4. VESICARE [Suspect]
     Active Substance: SOLIFENACIN SUCCINATE
     Indication: INFECTION
     Route: 048
     Dates: start: 2014
  5. MYRBETRIQ [Suspect]
     Active Substance: MIRABEGRON
     Indication: INFECTION
     Route: 048
     Dates: start: 2014

REACTIONS (4)
  - Nasopharyngitis [Unknown]
  - Urinary incontinence [Recovering/Resolving]
  - Cough [Unknown]
  - Drug ineffective for unapproved indication [Unknown]

NARRATIVE: CASE EVENT DATE: 20150919
